FAERS Safety Report 14488644 (Version 1)
Quarter: 2018Q1

REPORT INFORMATION
  Report Type: Report from Study
  Country: US (occurrence: US)
  Receive Date: 20180205
  Receipt Date: 20180205
  Transmission Date: 20180509
  Serious: Yes (Death)
  Sender: FDA-Public Use
  Company Number: US-ACTELION-A-NJ2017-156494

PATIENT
  Age: 72 Year
  Sex: Female

DRUGS (5)
  1. UPTRAVI [Suspect]
     Active Substance: SELEXIPAG
     Dosage: UNK
     Route: 048
  2. UPTRAVI [Suspect]
     Active Substance: SELEXIPAG
     Dosage: 200 MCG, BID
     Route: 048
     Dates: start: 20170724
  3. UPTRAVI [Suspect]
     Active Substance: SELEXIPAG
     Dosage: 200MCG AM, 400 MCG PM
     Route: 048
  4. UPTRAVI [Suspect]
     Active Substance: SELEXIPAG
     Indication: PULMONARY ARTERIAL HYPERTENSION
     Dosage: 400 MCG, BID
     Route: 048
     Dates: start: 20170619, end: 20180124
  5. UPTRAVI [Suspect]
     Active Substance: SELEXIPAG
     Dosage: 400 MCG AM, 600 MCG PM
     Route: 048

REACTIONS (6)
  - Skin bacterial infection [Not Recovered/Not Resolved]
  - Death [Fatal]
  - Dizziness [Unknown]
  - Diarrhoea [Recovering/Resolving]
  - Headache [Unknown]
  - Productive cough [Not Recovered/Not Resolved]

NARRATIVE: CASE EVENT DATE: 20170630
